FAERS Safety Report 12425118 (Version 1)
Quarter: 2016Q2

REPORT INFORMATION
  Report Type: Spontaneous
  Country: US (occurrence: US)
  Receive Date: 20160601
  Receipt Date: 20160601
  Transmission Date: 20160815
  Serious: No
  Sender: FDA-Public Use
  Company Number: US-MYLANLABS-2016M1007918

PATIENT
  Age: 48 Year
  Sex: Female

DRUGS (3)
  1. LIDOCAINE PATCH [Suspect]
     Active Substance: LIDOCAINE
     Indication: OFF LABEL USE
     Dosage: 1 DF, QD 12 HOURS ON, 12 HOURS OFF
     Route: 003
     Dates: start: 201601, end: 201602
  2. LIDOCAINE PATCH [Suspect]
     Active Substance: LIDOCAINE
     Indication: PAIN
     Dosage: 1 DF, QD, 12 HOURS ON, 12 HOURS OFF
     Route: 003
     Dates: start: 201601, end: 201602
  3. LIDOCAINE PATCH [Suspect]
     Active Substance: LIDOCAINE
     Dosage: 1 DF, QD 12 HOURS ON, 12 HOURS OFF
     Route: 003
     Dates: start: 201601, end: 201602

REACTIONS (4)
  - Product adhesion issue [Recovered/Resolved]
  - Drug effect decreased [Recovered/Resolved]
  - Hyperhidrosis [Recovered/Resolved]
  - Product quality issue [Recovered/Resolved]

NARRATIVE: CASE EVENT DATE: 201601
